FAERS Safety Report 12519481 (Version 1)
Quarter: 2016Q2

REPORT INFORMATION
  Report Type: Spontaneous
  Country: US (occurrence: US)
  Receive Date: 20160630
  Receipt Date: 20160630
  Transmission Date: 20160815
  Serious: Yes (Hospitalization)
  Sender: FDA-Public Use
  Company Number: US-ASTRAZENECA-2016SE69703

PATIENT
  Sex: Female

DRUGS (25)
  1. POLYETHYLENE GLYCOL3350 [Concomitant]
     Indication: CONSTIPATION
     Dosage: TAKE 17 G BY MOUTH AS NEEDED
     Route: 048
  2. DELTASONE [Concomitant]
     Active Substance: PREDNISONE
     Dosage: TAKE 2 TABS BY MOUTH ONE TIME PER DAY
     Route: 048
  3. PRAVACHOL [Concomitant]
     Active Substance: PRAVASTATIN SODIUM
     Indication: BLOOD CHOLESTEROL ABNORMAL
     Dosage: 20 MG TABLET, TAKE 1 TAB BY MOUTH ONE TIME PER DAY
     Route: 048
  4. NITROSTAT [Concomitant]
     Active Substance: NITROGLYCERIN
     Indication: CHEST PAIN
     Dosage: 1 TAB UNDER THE TONGUE EVERY 5 MINUTES AS NEEDED
     Route: 060
  5. CRESTOR [Suspect]
     Active Substance: ROSUVASTATIN CALCIUM
     Route: 048
  6. ZOFRAN ODT [Concomitant]
     Active Substance: ONDANSETRON HYDROCHLORIDE
     Indication: VOMITING
     Dosage: 4 MG, ONE TAB EVETRY SIX HOURS AS REQUIRED
     Route: 048
  7. DULCOLAX NOS [Concomitant]
     Active Substance: BISACODYL OR DOCUSATE SODIUM
     Indication: CONSTIPATION
     Dosage: 10 MG; PLACE 1 SUPPOSITORY RECTALLY ONCE PER DAY AS NEEDED
     Route: 054
  8. NORCO [Concomitant]
     Active Substance: ACETAMINOPHEN\HYDROCODONE BITARTRATE
     Indication: PAIN
     Dosage: 5-325 MG PER TABLET, TAKE 1 TAB BY MOUTH EVERY 6 HOURS AS NEEDED
     Route: 048
  9. SENOKOT-S [Concomitant]
     Active Substance: DOCUSATE SODIUM\SENNOSIDES
     Indication: CONSTIPATION
     Dosage: 8.6/50 MG,  2 TABS BY MOUTH EVERY NIGHT AT BEDTIME
     Route: 048
  10. CHOLECALCIFEROL [Concomitant]
     Active Substance: CHOLECALCIFEROL
     Route: 048
  11. RITUXIMAB [Concomitant]
     Active Substance: RITUXIMAB
     Dates: start: 20080929, end: 20081029
  12. ORENCIA [Concomitant]
     Active Substance: ABATACEPT
     Dates: start: 2014, end: 201412
  13. LISINOPRIL. [Suspect]
     Active Substance: LISINOPRIL
     Route: 048
  14. METHOTREXATE [Concomitant]
     Active Substance: METHOTREXATE
  15. COMBIVENT RESPIMAT [Concomitant]
     Active Substance: ALBUTEROL SULFATE\IPRATROPIUM BROMIDE
     Indication: WHEEZING
     Dosage: 20-100 MC/TACT, 1 PUFF AS DIRECTED FOUR TIMES PER DAY
  16. GUAIFENESIN-COOEINE [Concomitant]
     Indication: COUGH
     Dosage: 5 ML, EVERY FOUR HOURS AS REQUIRED
     Route: 048
  17. LEXAPRO [Concomitant]
     Active Substance: ESCITALOPRAM OXALATE
     Dosage: 20 MG TABLET, TAKE 1 TAB BY MOUTH ONE TIME PER DAY
     Route: 048
  18. PROTONIX [Concomitant]
     Active Substance: PANTOPRAZOLE SODIUM
     Indication: ABDOMINAL DISCOMFORT
     Route: 048
  19. ZOFRAN ODT [Concomitant]
     Active Substance: ONDANSETRON HYDROCHLORIDE
     Indication: NAUSEA
     Dosage: 4 MG, ONE TAB EVETRY SIX HOURS AS REQUIRED
     Route: 048
  20. COMBIVENT RESPIMAT [Concomitant]
     Active Substance: ALBUTEROL SULFATE\IPRATROPIUM BROMIDE
     Indication: DYSPNOEA
     Dosage: 20-100 MC/TACT, 1 PUFF AS DIRECTED FOUR TIMES PER DAY
  21. VALIUM [Concomitant]
     Active Substance: DIAZEPAM
     Dosage: TAKE 0.5 TABS BY MOUTH AT BEDTIME AS NEEDED
     Route: 048
  22. RITUXIMAB [Concomitant]
     Active Substance: RITUXIMAB
     Dates: start: 20110902
  23. OMEPRAZOLE. [Suspect]
     Active Substance: OMEPRAZOLE
     Dosage: 20 MG; TAKE 1 TAB BY MOUTH ONE TIME PER DAY
     Route: 048
  24. NYSTATIN. [Concomitant]
     Active Substance: NYSTATIN
     Indication: DYSPHAGIA
     Dosage: 5 ML
     Route: 048
  25. REQUIP [Concomitant]
     Active Substance: ROPINIROLE HYDROCHLORIDE
     Dosage: TAKE 2 TABS BY MOUTH EVERY NIGHT AT BEDTIME
     Route: 048

REACTIONS (3)
  - Influenza like illness [Unknown]
  - Myalgia [Unknown]
  - Pyrexia [Unknown]
